FAERS Safety Report 24141577 (Version 1)
Quarter: 2024Q3

REPORT INFORMATION
  Report Type: Spontaneous
  Country: NP (occurrence: NP)
  Receive Date: 20240726
  Receipt Date: 20240726
  Transmission Date: 20241016
  Serious: Yes (Other)
  Sender: RANBAXY
  Company Number: NP-SUN PHARMACEUTICAL INDUSTRIES LTD-2024RR-458556

PATIENT
  Age: 38 Year
  Sex: Male

DRUGS (1)
  1. FENOFIBRATE [Suspect]
     Active Substance: FENOFIBRATE
     Indication: Hypothyroidism
     Dosage: 160 MILLIGRAM, UNK
     Route: 065

REACTIONS (1)
  - Rhabdomyolysis [Recovering/Resolving]
